FAERS Safety Report 13255888 (Version 1)
Quarter: 2017Q1

REPORT INFORMATION
  Report Type: Spontaneous
  Country: US (occurrence: US)
  Receive Date: 20170219
  Receipt Date: 20170219
  Transmission Date: 20170428
  Serious: Yes (Hospitalization)
  Sender: FDA-Public Use
  Company Number: None

PATIENT
  Age: 62 Year
  Sex: Female
  Weight: 66.6 kg

DRUGS (12)
  1. VITAMIN B COMPLEX [Concomitant]
     Active Substance: CYANOCOBALAMIN\DEXPANTHENOL\NIACINAMIDE\PYRIDOXINE HYDROCHLORIDE\RIBOFLAVIN 5^-PHOSPHATE SODIUM\THIAMINE HYDROCHLORIDE\VITAMIN B COMPLEX
  2. VITAMIN K [Concomitant]
     Active Substance: PHYTONADIONE
  3. TUMS [Concomitant]
     Active Substance: CALCIUM CARBONATE
  4. LOSARTAN. [Concomitant]
     Active Substance: LOSARTAN
  5. ZOMETA [Suspect]
     Active Substance: ZOLEDRONIC ACID
     Indication: NEOPLASM MALIGNANT
     Route: 042
     Dates: start: 20170216
  6. LETROZOLE. [Concomitant]
     Active Substance: LETROZOLE
  7. PALOCICLIB [Concomitant]
  8. AMOX-CLAV [Concomitant]
     Active Substance: AMOXICILLIN\CLAVULANATE POTASSIUM
  9. VITAMIN D [Concomitant]
     Active Substance: CHOLECALCIFEROL
  10. ZOMETA [Suspect]
     Active Substance: ZOLEDRONIC ACID
     Indication: BONE DISORDER
     Route: 042
     Dates: start: 20170216
  11. OVER 50 WOMEN^S MULTI VITAMIN [Concomitant]
  12. LIPITOR [Concomitant]
     Active Substance: ATORVASTATIN CALCIUM

REACTIONS (11)
  - Body temperature increased [None]
  - Feeling cold [None]
  - Cough [None]
  - Decreased appetite [None]
  - Nausea [None]
  - Thirst [None]
  - Discomfort [None]
  - Dry mouth [None]
  - Infection [None]
  - Urine output decreased [None]
  - Depression [None]

NARRATIVE: CASE EVENT DATE: 20170217
